FAERS Safety Report 7690220-5 (Version None)
Quarter: 2011Q3

REPORT INFORMATION
  Report Type: 
  Country: None (occurrence: None)
  Receive Date: 20110818
  Receipt Date: 20110816
  Transmission Date: 20111222
  Serious: Yes (Death, Hospitalization, Other)
  Sender: FDA-Public Use
  Company Number: US-JNJFOC-20040903657

PATIENT
  Age: 21 Year
  Sex: Female

DRUGS (6)
  1. ETHANOL [Suspect]
     Indication: CHEST DISCOMFORT
     Route: 048
  2. EXTRA STRENGTH TYLENOL [Suspect]
     Indication: CHEST DISCOMFORT
     Route: 048
  3. TYLENOL PM EXTRA STRENGTH [Suspect]
     Indication: CHEST DISCOMFORT
     Route: 048
  4. EXTRA STRENGTH TYLENOL [Suspect]
     Indication: MUSCULOSKELETAL DISCOMFORT
     Route: 048
  5. TYLENOL PM EXTRA STRENGTH [Suspect]
     Indication: MUSCULOSKELETAL DISCOMFORT
     Route: 048
  6. ETHANOL [Suspect]
     Indication: BACK PAIN
     Route: 048

REACTIONS (11)
  - INTRACRANIAL PRESSURE INCREASED [None]
  - CHEST DISCOMFORT [None]
  - THROMBOCYTOPENIA [None]
  - HEPATIC FAILURE [None]
  - RENAL FAILURE [None]
  - DYSPNOEA [None]
  - HYPOGLYCAEMIA [None]
  - HYPOCALCAEMIA [None]
  - HYPOTENSION [None]
  - INTENTIONAL DRUG MISUSE [None]
  - HAEMATEMESIS [None]
